FAERS Safety Report 7459513-0 (Version None)
Quarter: 2011Q2

REPORT INFORMATION
  Report Type: 
  Country: None (occurrence: None)
  Receive Date: 20110505
  Receipt Date: 20110502
  Transmission Date: 20111010
  Serious: No
  Sender: FDA-Public Use
  Company Number: US-PFIZER INC-2011072358

PATIENT
  Sex: Female

DRUGS (2)
  1. SINGULAIR [Concomitant]
     Indication: ASTHMA
     Dosage: UNK
     Dates: start: 20110329, end: 20110331
  2. ZMAX [Suspect]
     Indication: SINUSITIS
     Dosage: 2 G, SINGLE (STAT)
     Route: 048
     Dates: start: 20110329

REACTIONS (1)
  - URTICARIA [None]
